FAERS Safety Report 4659826-1 (Version None)
Quarter: 2005Q2

REPORT INFORMATION
  Report Type: 
  Country: None (occurrence: None)
  Receive Date: 20050510
  Receipt Date: 20050428
  Transmission Date: 20051028
  Serious: Yes (Other)
  Sender: FDA-Public Use
  Company Number: 2005-04-1395

PATIENT
  Age: 74 Year
  Sex: Female
  Weight: 43.0917 kg

DRUGS (4)
  1. CLARITIN-D [Suspect]
     Indication: SINUS CONGESTION
     Dosage: ONCE ORAL
     Route: 048
     Dates: start: 20050415, end: 20050415
  2. VIT C TAB [Concomitant]
  3. METHYLSULFONYLMETHANE [Concomitant]
  4. NEURONTIN [Concomitant]

REACTIONS (8)
  - BURNING SENSATION [None]
  - DISORIENTATION [None]
  - HALLUCINATION [None]
  - INSOMNIA [None]
  - PAIN [None]
  - PHARMACEUTICAL PRODUCT COMPLAINT [None]
  - PRURITUS GENERALISED [None]
  - RASH GENERALISED [None]
